FAERS Safety Report 10440651 (Version 1)
Quarter: 2014Q3

REPORT INFORMATION
  Report Type: Spontaneous
  Country: US (occurrence: None)
  Receive Date: 20140905
  Receipt Date: 20140905
  Transmission Date: 20150326
  Serious: Yes (Other)
  Sender: FDA-Public Use
  Company Number: None

PATIENT
  Age: 70 Year
  Sex: Female
  Weight: 116.58 kg

DRUGS (7)
  1. MULTI-VITS + JOINT EFFORT [Concomitant]
  2. OMEGA 3 [Concomitant]
     Active Substance: OMEGA-3 FATTY ACIDS
  3. CIPROFLOXACIN HYDROCHLORIDE. [Suspect]
     Active Substance: CIPROFLOXACIN HYDROCHLORIDE
     Indication: EYE IRRITATION
     Dosage: ONE DROP IN THE EYE 4 TIMES DAILY.
     Route: 047
     Dates: start: 20140707
  4. ANACIN [Concomitant]
     Active Substance: ASPIRIN\CAFFEINE
  5. TYLENOL SINUS [Concomitant]
     Active Substance: ACETAMINOPHEN\DIPHENHYDRAMINE
  6. CIPROFLOXACIN HYDROCHLORIDE. [Suspect]
     Active Substance: CIPROFLOXACIN HYDROCHLORIDE
     Indication: EYE INFECTION
     Dosage: ONE DROP IN THE EYE 4 TIMES DAILY.
     Route: 047
     Dates: start: 20140707
  7. METOPROLOL TARTRATE) [Concomitant]

REACTIONS (5)
  - Pharyngeal oedema [None]
  - Eyelid margin crusting [None]
  - Dysgeusia [None]
  - Erythema [None]
  - Foreign body sensation in eyes [None]

NARRATIVE: CASE EVENT DATE: 20140717
